FAERS Safety Report 5926514-0 (Version None)
Quarter: 2008Q4

REPORT INFORMATION
  Report Type: 
  Country: None (occurrence: None)
  Receive Date: 20081022
  Receipt Date: 20081020
  Transmission Date: 20090506
  Serious: Yes (Other)
  Sender: FDA-Public Use
  Company Number: US-ELI_LILLY_AND_COMPANY-US200810004326

PATIENT
  Sex: Female

DRUGS (3)
  1. HUMULIN R [Suspect]
     Dosage: 5 U, UNK
  2. HUMULIN N [Suspect]
     Dosage: 25 U, EACH MORNING
  3. HUMULIN N [Suspect]
     Dosage: 10 U, UNK

REACTIONS (10)
  - ANGER [None]
  - ASTHENIA [None]
  - BLOOD GLUCOSE DECREASED [None]
  - EXPIRED DRUG ADMINISTERED [None]
  - FATIGUE [None]
  - IRRITABILITY [None]
  - RENAL FAILURE [None]
  - TENSION [None]
  - VISUAL ACUITY REDUCED [None]
  - VISUAL IMPAIRMENT [None]
